FAERS Safety Report 8597375 (Version 2)
Quarter: 2014Q2

REPORT INFORMATION
  Report Type: Spontaneous
  Country: US (occurrence: US)
  Receive Date: 20120605
  Receipt Date: 20140402
  Transmission Date: 20141212
  Serious: No
  Sender: FDA-Public Use
  Company Number: US-AMGEN-USASP2012028483

PATIENT
  Age: 66 Year
  Sex: Female
  Weight: 54.42 kg

DRUGS (3)
  1. ENBREL [Suspect]
     Indication: RHEUMATOID ARTHRITIS
     Dosage: 50 MG, QWK
     Route: 058
     Dates: start: 20070701
  2. ENBREL [Suspect]
     Indication: OSTEOARTHRITIS
  3. TREXALL [Concomitant]
     Dosage: 1 MG, UNK
     Dates: start: 20070701

REACTIONS (10)
  - Finger deformity [Not Recovered/Not Resolved]
  - Sciatica [Not Recovered/Not Resolved]
  - Medication error [Not Recovered/Not Resolved]
  - Back pain [Not Recovered/Not Resolved]
  - Fear of injection [Unknown]
  - Injection site pain [Not Recovered/Not Resolved]
  - Injection site erythema [Not Recovered/Not Resolved]
  - Injection site haemorrhage [Not Recovered/Not Resolved]
  - Injection site bruising [Not Recovered/Not Resolved]
  - Injection site reaction [Unknown]
